FAERS Safety Report 6111047-1 (Version None)
Quarter: 2009Q1

REPORT INFORMATION
  Report Type: 
  Country: None (occurrence: None)
  Receive Date: 20090311
  Receipt Date: 20090302
  Transmission Date: 20090719
  Serious: Yes (Other)
  Sender: FDA-Public Use
  Company Number: PHHY2009BR07565

PATIENT
  Age: 47 Year
  Sex: Female
  Weight: 52 kg

DRUGS (3)
  1. COMBIPATCH [Suspect]
     Indication: PREMATURE MENOPAUSE
     Dosage: 1 PATCH EVERY 3 DAYS
     Route: 062
     Dates: start: 20070501
  2. COMBIPATCH [Suspect]
     Dosage: 1 PATCH FOR 2 NIGHTS AND 1 DAY
  3. ARADOIS [Concomitant]
     Indication: HYPERTENSION
     Dosage: 50 MG, UNK
     Route: 048

REACTIONS (4)
  - AMENORRHOEA [None]
  - HYPERGLYCAEMIA [None]
  - PLASTIC SURGERY [None]
  - POLYMENORRHOEA [None]
